FAERS Safety Report 13961869 (Version 1)
Quarter: 2017Q3

REPORT INFORMATION
  Report Type: Spontaneous
  Country: US (occurrence: US)
  Receive Date: 20170912
  Receipt Date: 20170912
  Transmission Date: 20171128
  Serious: Yes (Other)
  Sender: FDA-Public Use
  Company Number: PHEH2017US028673

PATIENT
  Sex: Female

DRUGS (1)
  1. RECLAST [Suspect]
     Active Substance: ZOLEDRONIC ACID
     Indication: PRODUCT USED FOR UNKNOWN INDICATION
     Dosage: 5 MG/100 ML, UNK
     Route: 065
     Dates: start: 20160908

REACTIONS (31)
  - Abdominal discomfort [Unknown]
  - Abdominal pain upper [Unknown]
  - Fatigue [Unknown]
  - Hypoaesthesia [Unknown]
  - Blood urine present [Unknown]
  - Skin exfoliation [Unknown]
  - Back pain [Unknown]
  - Headache [Unknown]
  - Decreased appetite [Unknown]
  - Haematochezia [Unknown]
  - Hypokinesia [Unknown]
  - Malaise [Unknown]
  - Feeling abnormal [Unknown]
  - Hypovitaminosis [Unknown]
  - Gait disturbance [Unknown]
  - Vision blurred [Unknown]
  - Neck pain [Unknown]
  - Asthenia [Unknown]
  - Diarrhoea [Unknown]
  - Pain in extremity [Unknown]
  - Chest pain [Unknown]
  - Urine analysis abnormal [Unknown]
  - Weight decreased [Unknown]
  - Reflexes abnormal [Unknown]
  - Bone pain [Unknown]
  - Pain [Unknown]
  - Gastrooesophageal reflux disease [Unknown]
  - Muscle rigidity [Unknown]
  - Protein total decreased [Unknown]
  - Musculoskeletal chest pain [Unknown]
  - Drug ineffective [Unknown]
